FAERS Safety Report 9323323 (Version 3)
Quarter: 2014Q1

REPORT INFORMATION
  Report Type: Spontaneous
  Country: US (occurrence: US)
  Receive Date: 20130603
  Receipt Date: 20140320
  Transmission Date: 20141002
  Serious: Yes (Hospitalization)
  Sender: FDA-Public Use
  Company Number: US-B.I. PHARMACEUTICALS,INC./RIDGEFIELD-2013-BI-15147BP

PATIENT
  Sex: Male
  Weight: 83.91 kg

DRUGS (16)
  1. PRADAXA [Suspect]
     Indication: ATRIAL FIBRILLATION
     Dosage: 300 MG
     Route: 048
     Dates: start: 20111026, end: 20120104
  2. CORDARONE [Concomitant]
     Route: 065
  3. ASPIRIN [Concomitant]
     Route: 065
  4. CALCIUM [Concomitant]
     Route: 065
  5. IRON [Concomitant]
     Route: 065
  6. NIACIN [Concomitant]
     Route: 065
  7. ZOCOR [Concomitant]
     Route: 065
  8. SPIRONOLACTONE [Concomitant]
     Route: 065
  9. PROSCAR [Concomitant]
     Route: 065
  10. QUINAPRIL [Concomitant]
     Route: 065
  11. PLETAL [Concomitant]
     Route: 065
  12. LANOXIN [Concomitant]
     Route: 065
  13. LASIX [Concomitant]
     Route: 065
  14. GLYBURIDE [Concomitant]
     Route: 065
  15. FLOMAX [Concomitant]
     Route: 065
  16. TAMUSOLIN [Concomitant]
     Route: 065

REACTIONS (5)
  - Dyspnoea [Unknown]
  - Chest discomfort [Unknown]
  - Anaemia [Unknown]
  - Gastrointestinal haemorrhage [Unknown]
  - Arteriovenous malformation [Unknown]
